FAERS Safety Report 5394213-2 (Version None)
Quarter: 2007Q3

REPORT INFORMATION
  Report Type: 
  Country: None (occurrence: None)
  Receive Date: 20070723
  Receipt Date: 20070419
  Transmission Date: 20080115
  Serious: No
  Sender: FDA-Public Use
  Company Number: A0648036A

PATIENT
  Age: 57 Year
  Sex: Male
  Weight: 140.9 kg

DRUGS (8)
  1. AVANDIA [Suspect]
     Route: 048
  2. METOPROLOL TARTRATE [Concomitant]
  3. HYDROCHLOROTHIAZIDE [Concomitant]
  4. METFORMIN HCL [Concomitant]
  5. ASPIRIN [Concomitant]
     Dosage: 81MG PER DAY
     Route: 048
  6. GLIPIZIDE [Concomitant]
  7. LISINOPRIL [Concomitant]
  8. EZETIMIBE [Concomitant]

REACTIONS (2)
  - BLOOD GLUCOSE INCREASED [None]
  - POLLAKIURIA [None]
